FAERS Safety Report 23190255 (Version 1)
Quarter: 2023Q4

REPORT INFORMATION
  Report Type: Spontaneous
  Country: GB (occurrence: GB)
  Receive Date: 20231116
  Receipt Date: 20231116
  Transmission Date: 20240109
  Serious: Yes (Other)
  Sender: FDA-Public Use
  Company Number: GB-MHRA-TPP59101413C5471554YC1699277479318

PATIENT
  Age: 10 Month
  Sex: Female
  Weight: 5 kg

DRUGS (3)
  1. AMOXICILLIN [Suspect]
     Active Substance: AMOXICILLIN
     Indication: Ill-defined disorder
     Dosage: UNK
     Route: 065
     Dates: start: 20231106
  2. AMOXICILLIN [Concomitant]
     Active Substance: AMOXICILLIN
     Indication: Ill-defined disorder
     Dosage: TAKE 5ML THREE TIMES A DAY FOR 5 DAYS, TO TREAT...
     Route: 065
     Dates: start: 20231101, end: 20231106
  3. CHLORAMPHENICOL [Concomitant]
     Active Substance: CHLORAMPHENICOL
     Indication: Ill-defined disorder
     Dosage: APPLY TO THE AFFECTED EYE(S) TWICE A DAY UNTIL 2 DAYS AFTER SYMPTOMS RESOLVED
     Route: 065
     Dates: start: 20231101

REACTIONS (1)
  - Candida nappy rash [Recovered/Resolved]

NARRATIVE: CASE EVENT DATE: 20231106
